FAERS Safety Report 5293322-6 (Version None)
Quarter: 2007Q2

REPORT INFORMATION
  Report Type: 
  Country: None (occurrence: None)
  Receive Date: 20070411
  Receipt Date: 20070329
  Transmission Date: 20071010
  Serious: Yes (Hospitalization, Other)
  Sender: FDA-Public Use
  Company Number: US-KINGPHARMUSA00001-K200600221

PATIENT

DRUGS (10)
  1. ALTACE [Suspect]
     Dosage: 1.25 MG, QD
     Route: 048
  2. KARDEGIC/FRA/ [Suspect]
     Dosage: 1 U, QD
     Route: 048
  3. ALDACTONE [Suspect]
     Dosage: 2.5 U, QD
     Route: 048
  4. MODAMIDE [Suspect]
     Dosage: 2 U, QD
     Route: 048
  5. GLEEVEC [Suspect]
     Indication: CHRONIC MYELOID LEUKAEMIA
     Dosage: 400 MG, QD
     Route: 048
     Dates: start: 20050411
  6. LOGIMAX [Suspect]
     Dosage: 47.5 MG + 5 MG, QD
     Route: 048
  7. URION ^ZAMBON^ [Suspect]
     Route: 048
  8. MAG 2 [Suspect]
  9. NUCTALON [Suspect]
     Dosage: UNK, UNK
     Route: 048
  10. DIFFU K [Suspect]
     Dosage: UNK, UNK
     Route: 048

REACTIONS (8)
  - DRUG ERUPTION [None]
  - HYPERKERATOSIS [None]
  - LICHENOID KERATOSIS [None]
  - MYCOSIS FUNGOIDES [None]
  - PRURIGO [None]
  - PRURITUS [None]
  - RASH ERYTHEMATOUS [None]
  - RASH PAPULAR [None]
